FAERS Safety Report 4713151-9 (Version None)
Quarter: 2005Q3

REPORT INFORMATION
  Report Type: 
  Country: None (occurrence: None)
  Receive Date: 20050713
  Receipt Date: 20050707
  Transmission Date: 20060218
  Serious: Yes (Other)
  Sender: FDA-Public Use
  Company Number: CH-GLAXOSMITHKLINE-B0387203A

PATIENT
  Age: 83 Year
  Sex: Female

DRUGS (2)
  1. DERMOVATE [Suspect]
     Indication: ALOPECIA SCARRING
     Route: 061
     Dates: start: 20050601, end: 20050610
  2. TACROLIMUS [Suspect]
     Indication: ALOPECIA SCARRING
     Route: 061
     Dates: start: 20050601, end: 20050610

REACTIONS (6)
  - BALANCE DISORDER [None]
  - BRADYPHRENIA [None]
  - FALL [None]
  - HEADACHE [None]
  - HEARING IMPAIRED [None]
  - SLEEP WALKING [None]
